FAERS Safety Report 8932556 (Version 1)
Quarter: 2012Q4

REPORT INFORMATION
  Report Type: Spontaneous
  Country: US (occurrence: None)
  Receive Date: 20121121
  Receipt Date: 20121121
  Transmission Date: 20130627
  Serious: No
  Sender: FDA-Public Use
  Company Number: None

PATIENT
  Sex: Female
  Weight: 68.04 kg

DRUGS (1)
  1. OXCARBAZEPINE [Suspect]
     Indication: CONVULSION DISORDER
     Dosage: 300 MG BID ORAL
     Route: 048
     Dates: start: 2010

REACTIONS (4)
  - Product substitution issue [None]
  - Anxiety [None]
  - Depression [None]
  - Convulsion [None]
